FAERS Safety Report 11627993 (Version 1)
Quarter: 2015Q4

REPORT INFORMATION
  Report Type: Spontaneous
  Country: US (occurrence: US)
  Receive Date: 20151014
  Receipt Date: 20151014
  Transmission Date: 20160304
  Serious: No
  Sender: FDA-Public Use
  Company Number: US-ASTRAZENECA-2015SE95681

PATIENT
  Sex: Female
  Weight: 49.9 kg

DRUGS (1)
  1. TUDORZA PRESSAIR [Suspect]
     Active Substance: ACLIDINIUM BROMIDE
     Indication: EMPHYSEMA
     Dosage: 400 MCG 1 PUFF, TWO TIMES A DAY
     Route: 055

REACTIONS (4)
  - Memory impairment [Unknown]
  - Hearing impaired [Unknown]
  - Drug dose omission [Unknown]
  - Product quality issue [Unknown]
